FAERS Safety Report 6390282-1 (Version None)
Quarter: 2009Q4

REPORT INFORMATION
  Report Type: 
  Country: None (occurrence: None)
  Receive Date: 20091005
  Receipt Date: 20091005
  Transmission Date: 20100525
  Serious: Yes (Hospitalization)
  Sender: FDA-Public Use
  Company Number: None

PATIENT
  Age: 57 Year
  Sex: Male

DRUGS (1)
  1. LORAZEPAM [Suspect]
     Dosage: 1MG PO
     Route: 048
     Dates: start: 20090827, end: 20090831

REACTIONS (7)
  - CONFUSIONAL STATE [None]
  - DISTURBANCE IN ATTENTION [None]
  - EXPRESSIVE LANGUAGE DISORDER [None]
  - INAPPROPRIATE SCHEDULE OF DRUG ADMINISTRATION [None]
  - MENTAL STATUS CHANGES [None]
  - OVERDOSE [None]
  - SOMNOLENCE [None]
